FAERS Safety Report 19475385 (Version 4)
Quarter: 2023Q2

REPORT INFORMATION
  Report Type: Spontaneous
  Country: US (occurrence: None)
  Receive Date: 20210630
  Receipt Date: 20230523
  Transmission Date: 20230721
  Serious: Yes (Hospitalization, Other)
  Sender: FDA-Public Use
  Company Number: US-ROCHE-2860031

PATIENT
  Age: 9 Year
  Sex: Male

DRUGS (5)
  1. HEMLIBRA [Suspect]
     Active Substance: EMICIZUMAB-KXWH
     Indication: Factor VIII deficiency
     Dosage: STRENGTH : 60MG/0.4ML
     Route: 058
     Dates: start: 20190404
  2. HEMLIBRA [Suspect]
     Active Substance: EMICIZUMAB-KXWH
     Dosage: STRENGTH : 60MG/0.4ML
     Route: 058
     Dates: start: 20220511
  3. HEMLIBRA [Suspect]
     Active Substance: EMICIZUMAB-KXWH
     Dosage: STRENGTH : 60MG/0.4ML
     Route: 058
     Dates: start: 20221213
  4. HEMLIBRA [Suspect]
     Active Substance: EMICIZUMAB-KXWH
     Dosage: STRENGTH : 105MG/0.7ML
     Route: 058
     Dates: start: 20221213
  5. HEMLIBRA [Suspect]
     Active Substance: EMICIZUMAB-KXWH
     Dosage: STRENGTH : 105MG/0.7ML
     Route: 058
     Dates: start: 201810

REACTIONS (2)
  - Haemorrhage [Unknown]
  - Head injury [Recovered/Resolved]
